FAERS Safety Report 5536300-1 (Version None)
Quarter: 2007Q4

REPORT INFORMATION
  Report Type: 
  Country: None (occurrence: None)
  Receive Date: 20071206
  Receipt Date: 20071203
  Transmission Date: 20080405
  Serious: Yes (Other)
  Sender: FDA-Public Use
  Company Number: TH-BOEHRINGER INGELHEIM PHARMACEUTICALS, INC.-2007-DE-07098GD

PATIENT

DRUGS (2)
  1. NEVIRAPINE [Suspect]
     Indication: HIV INFECTION
  2. TRIOMUNE [Suspect]
     Indication: HIV INFECTION

REACTIONS (1)
  - PNEUMOCYSTIS JIROVECI PNEUMONIA [None]
